FAERS Safety Report 5872654-4 (Version None)
Quarter: 2008Q3

REPORT INFORMATION
  Report Type: 
  Country: None (occurrence: None)
  Receive Date: 20080905
  Receipt Date: 20080902
  Transmission Date: 20090109
  Serious: Yes (Death)
  Sender: FDA-Public Use
  Company Number: PHEH1995US03256

PATIENT
  Age: 39 Year
  Sex: Male

DRUGS (1)
  1. NEORAL [Suspect]
     Route: 065
     Dates: start: 19950206, end: 19950710

REACTIONS (4)
  - CARDIAC ARREST [None]
  - DEATH [None]
  - PERICARDITIS [None]
  - SEPSIS [None]
